FAERS Safety Report 5806174-X (Version None)
Quarter: 2008Q3

REPORT INFORMATION
  Report Type: 
  Country: None (occurrence: None)
  Receive Date: 20080709
  Receipt Date: 20080709
  Transmission Date: 20090109
  Serious: No
  Sender: FDA-Public Use
  Company Number: None

PATIENT
  Age: 63 Year
  Sex: Male
  Weight: 67.5 kg

DRUGS (2)
  1. WARFARIN SODIUM [Suspect]
     Indication: DEEP VEIN THROMBOSIS
     Dates: start: 20071106, end: 20080109
  2. CAPECITABINE [Suspect]
     Indication: NEOPLASM MALIGNANT
     Dosage: 1500 MG BID PO
     Route: 048
     Dates: start: 20071228, end: 20080112

REACTIONS (11)
  - ABDOMINAL PAIN [None]
  - ASTHENIA [None]
  - DECREASED APPETITE [None]
  - DIZZINESS [None]
  - HAEMATURIA [None]
  - HAEMORRHAGE [None]
  - HYPOPHAGIA [None]
  - INTERNATIONAL NORMALISED RATIO ABNORMAL [None]
  - INTERNATIONAL NORMALISED RATIO INCREASED [None]
  - NAUSEA [None]
  - VOMITING [None]
